FAERS Safety Report 6922466-5 (Version None)
Quarter: 2010Q3

REPORT INFORMATION
  Report Type: 
  Country: None (occurrence: None)
  Receive Date: 20100813
  Receipt Date: 20100804
  Transmission Date: 20110219
  Serious: Yes (Hospitalization, Other)
  Sender: FDA-Public Use
  Company Number: FR-JNJFOC-20100801240

PATIENT
  Age: 77 Year
  Sex: Female

DRUGS (20)
  1. LEVOFLOXACIN [Suspect]
     Indication: PRODUCT USED FOR UNKNOWN INDICATION
     Route: 065
  2. LEVOFLOXACIN [Suspect]
     Indication: BRONCHITIS
     Route: 048
  3. AMBROXOL [Suspect]
     Indication: BRONCHITIS
     Route: 049
  4. NEBCIN [Suspect]
     Indication: BRONCHITIS
     Route: 049
  5. OROCAL D [Concomitant]
     Route: 065
  6. IMOVANE [Concomitant]
     Route: 065
  7. DIFFU K [Concomitant]
     Route: 065
  8. DIALGIREX [Concomitant]
     Route: 065
  9. CYSTINE B6 BAILLEUL [Concomitant]
     Route: 065
  10. PREVISCAN (FLUINDIONE) [Concomitant]
     Route: 065
  11. LASIX [Concomitant]
     Route: 065
  12. LASIX [Concomitant]
     Route: 065
  13. HEMIGOXINE NATIVELLE [Concomitant]
     Route: 065
  14. NEURONTIN [Concomitant]
     Route: 065
  15. XALATAN [Concomitant]
     Route: 065
  16. ALDACTONE [Concomitant]
     Route: 065
  17. NITROGLYCERIN [Concomitant]
     Route: 065
  18. CARBOCISTEINE [Concomitant]
     Route: 065
  19. SALBUTAMOL SULFATE [Concomitant]
     Route: 065
  20. AERIUS [Concomitant]
     Route: 065

REACTIONS (11)
  - ACUTE GENERALISED EXANTHEMATOUS PUSTULOSIS [None]
  - CHOLESTASIS [None]
  - CYANOSIS [None]
  - DIABETES MELLITUS [None]
  - HYPERTHERMIA [None]
  - INFLAMMATION [None]
  - LIPOMATOSIS [None]
  - LIVEDO RETICULARIS [None]
  - PETECHIAE [None]
  - RENAL FAILURE [None]
  - TOXIC SKIN ERUPTION [None]
